FAERS Safety Report 5312070-7 (Version None)
Quarter: 2007Q2

REPORT INFORMATION
  Report Type: 
  Country: None (occurrence: None)
  Receive Date: 20070430
  Receipt Date: 20060801
  Transmission Date: 20071010
  Serious: No
  Sender: FDA-Public Use
  Company Number: 2006UW15400

PATIENT
  Age: 79 Year
  Sex: Female
  Weight: 70.5 kg

DRUGS (12)
  1. NEXIUM [Suspect]
     Route: 048
     Dates: start: 20060511, end: 20060515
  2. EXTRA STRENGTH TYLENOL [Suspect]
     Dosage: 1 DOSE(S), 1 IN 1 DAY, ORAL / CAPLET
     Route: 048
     Dates: start: 20060511, end: 20060515
  3. BENICAR [Concomitant]
  4. AMARYL [Concomitant]
  5. LIPITOR [Concomitant]
  6. LEVOXYL [Concomitant]
  7. SOTALOL HYDROCHLORIDE [Concomitant]
  8. XALATAN [Concomitant]
     Indication: GLAUCOMA
  9. XALATAN [Concomitant]
  10. TUMS [Concomitant]
  11. VITAMINS [Concomitant]
  12. ASPIRIN [Concomitant]

REACTIONS (3)
  - BURNING SENSATION [None]
  - PRURITUS [None]
  - RASH GENERALISED [None]
